FAERS Safety Report 24062202 (Version 2)
Quarter: 2024Q3

REPORT INFORMATION
  Report Type: Spontaneous
  Country: US (occurrence: US)
  Receive Date: 20240708
  Receipt Date: 20240724
  Transmission Date: 20241017
  Serious: No
  Sender: BAYER
  Company Number: US-BAYER-2024A096385

PATIENT
  Age: 33 Year
  Sex: Female

DRUGS (1)
  1. MIRENA [Suspect]
     Active Substance: LEVONORGESTREL
     Indication: Contraception
     Dosage: 20?G/DAY
     Route: 015
     Dates: start: 20180506

REACTIONS (1)
  - Menstrual disorder [None]

NARRATIVE: CASE EVENT DATE: 20240101
